FAERS Safety Report 12844108 (Version 2)
Quarter: 2016Q4

REPORT INFORMATION
  Report Type: Report from Study
  Country: None (occurrence: BR)
  Receive Date: 20161013
  Receipt Date: 20161118
  Transmission Date: 20170207
  Serious: Yes (Hospitalization)
  Sender: FDA-Public Use
  Company Number: BR-ABBVIE-16K-020-1747453-00

PATIENT
  Sex: Male

DRUGS (7)
  1. LEVOTHYROXINE. [Concomitant]
     Active Substance: LEVOTHYROXINE
     Indication: AUTOIMMUNE THYROIDITIS
  2. ATORVASTATIN [Concomitant]
     Active Substance: ATORVASTATIN
     Indication: HYPERCHOLESTEROLAEMIA
  3. NEBIVOLOL. [Concomitant]
     Active Substance: NEBIVOLOL
     Indication: SUPRAVENTRICULAR TACHYCARDIA
  4. ASPIRINA [Concomitant]
     Active Substance: ASPIRIN
     Indication: PRODUCT USED FOR UNKNOWN INDICATION
  5. NEBIVOLOL. [Concomitant]
     Active Substance: NEBIVOLOL
     Indication: HYPERTENSION
  6. HUMIRA [Suspect]
     Active Substance: ADALIMUMAB
     Indication: RHEUMATOID ARTHRITIS
     Route: 058
     Dates: start: 20140216
  7. LOSARTAN. [Concomitant]
     Active Substance: LOSARTAN
     Indication: HYPERTENSION

REACTIONS (7)
  - Nuclear magnetic resonance imaging abnormal [Recovered/Resolved]
  - Tenosynovitis [Recovered/Resolved]
  - Muscle atrophy [Unknown]
  - Synovial disorder [Recovered/Resolved]
  - Rheumatoid arthritis [Recovered/Resolved]
  - Pain in extremity [Not Recovered/Not Resolved]
  - Tendonitis [Unknown]
